FAERS Safety Report 24376280 (Version 1)
Quarter: 2024Q3

REPORT INFORMATION
  Report Type: Spontaneous
  Country: US (occurrence: US)
  Receive Date: 20240930
  Receipt Date: 20240930
  Transmission Date: 20241017
  Serious: No
  Sender: AJANTA PHARMA
  Company Number: US-AJANTA-2024AJA00154

PATIENT
  Age: 76 Year
  Sex: Male
  Weight: 182 kg

DRUGS (2)
  1. SILDENAFIL [Suspect]
     Active Substance: SILDENAFIL
     Indication: Erectile dysfunction
     Dates: start: 202408, end: 202409
  2. Dobive [Concomitant]

REACTIONS (2)
  - Drug ineffective [Unknown]
  - Product substitution issue [Unknown]

NARRATIVE: CASE EVENT DATE: 20240101
